FAERS Safety Report 7478734-4 (Version None)
Quarter: 2011Q2

REPORT INFORMATION
  Report Type: 
  Country: None (occurrence: None)
  Receive Date: 20110513
  Receipt Date: 20110503
  Transmission Date: 20111010
  Serious: Yes (Other)
  Sender: FDA-Public Use
  Company Number: FR-SANOFI-AVENTIS-2011SA027196

PATIENT

DRUGS (2)
  1. JEVTANA KIT [Suspect]
     Indication: BREAST CANCER
     Dosage: ADMINISTERED ON DAY 1
     Route: 042
  2. CAPECITABINE [Suspect]
     Indication: BREAST CANCER
     Dosage: ADMINISTERED EVERY THREE WEEKS.
     Route: 048

REACTIONS (6)
  - FEBRILE NEUTROPENIA [None]
  - NEUTROPENIC COLITIS [None]
  - ASTHENIA [None]
  - NEUTROPENIA [None]
  - NEUTROPENIC INFECTION [None]
  - PALMAR-PLANTAR ERYTHRODYSAESTHESIA SYNDROME [None]
